FAERS Safety Report 23184456 (Version 2)
Quarter: 2023Q4

REPORT INFORMATION
  Report Type: Spontaneous
  Country: US (occurrence: None)
  Receive Date: 20231115
  Receipt Date: 20231130
  Transmission Date: 20240109
  Serious: Yes (Other)
  Sender: FDA-Public Use
  Company Number: US-ROCHE-3455394

PATIENT
  Age: 81 Year
  Sex: Male
  Weight: 106.69 kg

DRUGS (13)
  1. ESBRIET [Suspect]
     Active Substance: PIRFENIDONE
     Indication: Product used for unknown indication
     Route: 048
     Dates: end: 20231030
  2. TYVASO DPI [Suspect]
     Active Substance: TREPROSTINIL
     Indication: Pulmonary arterial hypertension
     Dates: start: 20230626, end: 20231030
  3. TYLENOL [Concomitant]
     Active Substance: ACETAMINOPHEN
  4. PREDNISONE [Concomitant]
     Active Substance: PREDNISONE
  5. TELMISARTAN [Concomitant]
     Active Substance: TELMISARTAN
  6. ATORVASTATIN CALCIUM [Concomitant]
     Active Substance: ATORVASTATIN CALCIUM
  7. METOPROLOL SUCCINATE [Concomitant]
     Active Substance: METOPROLOL SUCCINATE
  8. OXYGEN [Concomitant]
     Active Substance: OXYGEN
  9. ALPRAZOLAM [Concomitant]
     Active Substance: ALPRAZOLAM
  10. SPIRONOLACTONE [Concomitant]
     Active Substance: SPIRONOLACTONE
  11. LEXAPRO [Concomitant]
     Active Substance: ESCITALOPRAM OXALATE
  12. TORSEMIDE [Concomitant]
     Active Substance: TORSEMIDE
  13. DILTIAZEM [Concomitant]
     Active Substance: DILTIAZEM

REACTIONS (5)
  - Pneumonia [Unknown]
  - Solar lentigo [Unknown]
  - Therapy non-responder [Unknown]
  - Pneumonia [Unknown]
  - Dyspnoea [Unknown]
